FAERS Safety Report 9237166 (Version 1)
Quarter: 2013Q2

REPORT INFORMATION
  Report Type: Spontaneous
  Country: US (occurrence: US)
  Receive Date: 20130417
  Receipt Date: 20130417
  Transmission Date: 20140414
  Serious: Yes (Life-Threatening, Other)
  Sender: FDA-Public Use
  Company Number: CHPA2013US006246

PATIENT
  Age: 66 Year
  Sex: Female

DRUGS (3)
  1. BENEFIBER W/ WHEAT DEXTRIN [Suspect]
     Indication: IRRITABLE BOWEL SYNDROME
     Dosage: 4 TO 8 TSP IN 24 HOURS, QD
     Route: 048
  2. BENEFIBER STICK PACKS [Suspect]
     Indication: IRRITABLE BOWEL SYNDROME
     Dosage: 1 DF, PRN
     Route: 048
  3. LYRICA [Suspect]
     Indication: FIBROMYALGIA
     Dosage: UNK, UNK

REACTIONS (10)
  - Apparent death [Recovered/Resolved]
  - Vertigo [Not Recovered/Not Resolved]
  - Disease recurrence [Not Recovered/Not Resolved]
  - Hyperhidrosis [Recovered/Resolved]
  - Pain [Recovered/Resolved]
  - Gait disturbance [Recovered/Resolved]
  - Off label use [Unknown]
  - Therapeutic response unexpected [Unknown]
  - Incorrect dose administered [Unknown]
  - Overdose [Unknown]
